FAERS Safety Report 14331876 (Version 1)
Quarter: 2017Q4

REPORT INFORMATION
  Report Type: Spontaneous
  Country: FR (occurrence: FR)
  Receive Date: 20171228
  Receipt Date: 20171228
  Transmission Date: 20180321
  Serious: Yes (Hospitalization, Other)
  Sender: FDA-Public Use
  Company Number: FR-PFM-2017-12720

PATIENT

DRUGS (2)
  1. PROPRANOLOL [Suspect]
     Active Substance: PROPRANOLOL HYDROCHLORIDE
     Indication: PRODUCT USED FOR UNKNOWN INDICATION
     Dosage: 320 MG IN ONE INTAKE
     Route: 048
     Dates: start: 20171113, end: 20171113
  2. ALPRAZOLAM. [Suspect]
     Active Substance: ALPRAZOLAM
     Indication: PRODUCT USED FOR UNKNOWN INDICATION
     Dosage: 15 MG, IN ONE INTAKE
     Route: 048
     Dates: start: 20171113, end: 20171113

REACTIONS (6)
  - Malaise [Recovered/Resolved]
  - Tachypnoea [Recovered/Resolved]
  - Coma [Recovered/Resolved]
  - Somnolence [Recovering/Resolving]
  - Poisoning deliberate [Unknown]
  - Intentional overdose [Unknown]

NARRATIVE: CASE EVENT DATE: 20171113
